FAERS Safety Report 8048013-5 (Version None)
Quarter: 2012Q1

REPORT INFORMATION
  Report Type: 
  Country: None (occurrence: None)
  Receive Date: 20120117
  Receipt Date: 20120105
  Transmission Date: 20120608
  Serious: Yes (Death)
  Sender: FDA-Public Use
  Company Number: JP-BRISTOL-MYERS SQUIBB COMPANY-16347874

PATIENT
  Age: 60 Year
  Sex: Male

DRUGS (2)
  1. TAXOL [Suspect]
     Indication: GASTRIC CANCER
     Dosage: DAY 8,15,22
  2. FLUOROURACIL [Suspect]
     Indication: GASTRIC CANCER
     Dosage: DAY 1-5

REACTIONS (2)
  - METASTASES TO LIVER [None]
  - MYELODYSPLASTIC SYNDROME [None]
